FAERS Safety Report 5749406-9 (Version None)
Quarter: 2008Q2

REPORT INFORMATION
  Report Type: 
  Country: None (occurrence: None)
  Receive Date: 20080527
  Receipt Date: 20080520
  Transmission Date: 20081010
  Serious: Yes (Death, Hospitalization)
  Sender: FDA-Public Use
  Company Number: FR-AVENTIS-200811822FR

PATIENT
  Age: 73 Year
  Sex: Male

DRUGS (6)
  1. CLAFORAN [Suspect]
     Dates: start: 20080307, end: 20080323
  2. CALCIPARINE [Suspect]
     Route: 058
     Dates: start: 20080304, end: 20080320
  3. FOSFOCINE [Suspect]
     Dates: start: 20080313, end: 20080323
  4. ACUPAN [Suspect]
     Dates: start: 20080309, end: 20080321
  5. AVLOCARDYL [Concomitant]
  6. LEXOMIL [Concomitant]
     Route: 048

REACTIONS (2)
  - RENAL CANCER [None]
  - THROMBOCYTOPENIA [None]
